FAERS Safety Report 6139655-2 (Version None)
Quarter: 2009Q1

REPORT INFORMATION
  Report Type: 
  Country: None (occurrence: None)
  Receive Date: 20090330
  Receipt Date: 20081024
  Transmission Date: 20090719
  Serious: Yes (Hospitalization, Other)
  Sender: FDA-Public Use
  Company Number: 175822USA

PATIENT
  Age: 71 Year
  Sex: Female

DRUGS (3)
  1. IFOSFAMIDE AND MESNA [Suspect]
     Indication: T-CELL LYMPHOMA
     Dosage: (7.45 GRAM), INTRAVENOUS
     Route: 042
     Dates: start: 20080726
  2. CARBOPLATIN [Concomitant]
  3. ETOPOSIDE [Concomitant]

REACTIONS (1)
  - NEUROTOXICITY [None]
